FAERS Safety Report 9954236 (Version 1)
Quarter: 2020Q3

REPORT INFORMATION
  Report Type: Report from Study
  Country: KR (occurrence: KR)
  Receive Date: 20140304
  Receipt Date: 20140304
  Transmission Date: 20201105
  Serious: Yes (Hospitalization)
  Sender: FDA-Public Use
  Company Number: PHHY2014KR023677

PATIENT
  Sex: Male

DRUGS (15)
  1. CALCIUM FOLINATE [Suspect]
     Active Substance: LEUCOVORIN CALCIUM
     Indication: GASTROOESOPHAGEAL CANCER
     Route: 042
     Dates: start: 20130724
  2. CALCIUM FOLINATE [Suspect]
     Active Substance: LEUCOVORIN CALCIUM
     Dosage: 320 MG, IN 2 WEEKS
     Route: 042
     Dates: start: 20131220
  3. 5 FLUORO URACIL [Suspect]
     Active Substance: FLUOROURACIL
     Route: 042
     Dates: start: 20130725
  4. DEXAMETHASONE. [Concomitant]
     Active Substance: DEXAMETHASONE
     Indication: ANTIEMETIC SUPPORTIVE CARE
     Dosage: 10 MG, DAILY
     Route: 042
     Dates: start: 20130724
  5. DESOWEN [Concomitant]
     Active Substance: DESONIDE
     Indication: SKIN LESION
     Dosage: 120 ML, DAILY
     Route: 061
     Dates: start: 20130823
  6. MACPERAN [Concomitant]
     Indication: ANTIEMETIC SUPPORTIVE CARE
     Route: 042
  7. EXFORGE [Concomitant]
     Active Substance: AMLODIPINE BESYLATE\VALSARTAN
     Indication: HYPERTENSION
     Dosage: 80 MG, DAILY
     Route: 048
     Dates: start: 2011
  8. NASERON [Concomitant]
     Indication: ANTIEMETIC SUPPORTIVE CARE
     Route: 042
  9. OXALIPLATIN. [Suspect]
     Active Substance: OXALIPLATIN
     Indication: GASTROOESOPHAGEAL CANCER
     Route: 042
     Dates: start: 20130724
  10. 5 FLUORO URACIL [Suspect]
     Active Substance: FLUOROURACIL
     Indication: GASTROOESOPHAGEAL CANCER
     Route: 040
     Dates: start: 20130725
  11. 5 FLUORO URACIL [Suspect]
     Active Substance: FLUOROURACIL
     Dosage: 640 MG, IN 2 WEEKS
     Route: 040
     Dates: start: 20131222
  12. 5 FLUORO URACIL [Suspect]
     Active Substance: FLUOROURACIL
     Dosage: 3840 MG, IN 2 WEEKS
     Route: 042
     Dates: start: 20131222
  13. OXALIPLATIN. [Suspect]
     Active Substance: OXALIPLATIN
     Dosage: 80 MG, IN 2 WEEKS
     Route: 042
     Dates: start: 20131220
  14. ONARTUZUMAB. [Suspect]
     Active Substance: ONARTUZUMAB
     Indication: GASTROOESOPHAGEAL CANCER
     Route: 042
     Dates: start: 20130724
  15. GODEX [Concomitant]
     Indication: ALANINE AMINOTRANSFERASE INCREASED

REACTIONS (3)
  - Cellulitis [Not Recovered/Not Resolved]
  - Pain in extremity [Not Recovered/Not Resolved]
  - Pyrexia [Recovered/Resolved]
